FAERS Safety Report 6473440-7 (Version None)
Quarter: 2009Q4

REPORT INFORMATION
  Report Type: 
  Country: None (occurrence: None)
  Receive Date: 20091204
  Receipt Date: 20081222
  Transmission Date: 20100525
  Serious: Yes (Hospitalization)
  Sender: FDA-Public Use
  Company Number: US-ELI_LILLY_AND_COMPANY-US200812000692

PATIENT
  Sex: Female
  Weight: 81.633 kg

DRUGS (15)
  1. BYETTA [Suspect]
     Indication: TYPE 2 DIABETES MELLITUS
     Dosage: 5 UG, 2/D
     Route: 058
     Dates: start: 20050101
  2. BYETTA [Suspect]
     Dosage: 10 UG, 2/D
     Route: 058
  3. GLIMEPIRIDE [Concomitant]
     Indication: TYPE 2 DIABETES MELLITUS
     Dosage: 2 MG, EACH MORNING
  4. GLIMEPIRIDE [Concomitant]
     Dosage: 1 MG, EACH EVENING
  5. TRIAMTERENE AND HYDROCHLOROTHIAZIDE [Concomitant]
     Indication: HYPERTENSION
     Dosage: UNK, DAILY (1/D)
     Route: 048
  6. FUROSEMIDE [Concomitant]
     Indication: POLYURIA
     Dosage: 40 MG, DAILY (1/D)
     Route: 048
  7. METOPROLOL [Concomitant]
     Indication: CARDIAC DISORDER
     Dosage: 50 MG, DAILY (1/D)
     Route: 048
  8. AVAPRO [Concomitant]
     Indication: HYPERTENSION
     Dosage: 300 MG, DAILY (1/D)
     Route: 048
  9. PLAVIX [Concomitant]
     Indication: CARDIAC DISORDER
     Dosage: 75 MG, DAILY (1/D)
     Route: 048
  10. SYNTHROID [Concomitant]
     Indication: HYPOTHYROIDISM
     Dosage: 100 UG, DAILY (1/D)
     Route: 048
  11. CRESTOR [Concomitant]
     Indication: BLOOD CHOLESTEROL
     Dosage: 20 MG, DAILY (1/D)
     Route: 048
  12. ZETIA [Concomitant]
     Indication: BLOOD CHOLESTEROL
     Dosage: 10 MG, DAILY (1/D)
     Route: 048
  13. COUMADIN [Concomitant]
     Indication: CARDIAC DISORDER
     Dosage: 2.5 MG, 3/W
  14. COUMADIN [Concomitant]
     Dosage: 5 MG, 4/W
  15. ISTALOL [Concomitant]
     Indication: GLAUCOMA
     Dosage: 1 GTT, DAILY (1/D)
     Dates: start: 20040101

REACTIONS (3)
  - BACK PAIN [None]
  - DEVICE OCCLUSION [None]
  - SENSATION OF PRESSURE [None]
